FAERS Safety Report 9598883 (Version 1)
Quarter: 2013Q4

REPORT INFORMATION
  Report Type: Spontaneous
  Country: US (occurrence: US)
  Receive Date: 20131004
  Receipt Date: 20131004
  Transmission Date: 20140711
  Serious: No
  Sender: FDA-Public Use
  Company Number: US-AMGEN-USASP2013026560

PATIENT
  Age: 38 Year
  Sex: Female
  Weight: 113.38 kg

DRUGS (8)
  1. ENBREL [Suspect]
     Indication: PRODUCT USED FOR UNKNOWN INDICATION
     Dosage: 50 MG, QWK
  2. RELAFEN [Concomitant]
     Dosage: 750 MG, UNK
  3. VITAMIN B12                        /00056201/ [Concomitant]
     Dosage: 1000 CR
  4. IRON [Concomitant]
     Dosage: UNK
  5. TYLENOL                            /00020001/ [Concomitant]
     Dosage: 500 MG, / RR UNK
  6. TRAMADOL HCL [Concomitant]
     Dosage: 150 MG, ER UNK
  7. VITAMIN D                          /00107901/ [Concomitant]
     Dosage: UNK GUMMIE CHW 400 UNIT
  8. RECLAST [Concomitant]
     Dosage: UNK 5/100 ML

REACTIONS (1)
  - Drug effect incomplete [Unknown]
